FAERS Safety Report 24905762 (Version 2)
Quarter: 2025Q1

REPORT INFORMATION
  Report Type: Spontaneous
  Country: FR (occurrence: FR)
  Receive Date: 20250130
  Receipt Date: 20250321
  Transmission Date: 20250408
  Serious: Yes (Other)
  Sender: SANDOZ
  Company Number: FR-SANDOZ-SDZ2025FR004809

PATIENT
  Age: 40 Year
  Sex: Male

DRUGS (3)
  1. TERIFLUNOMIDE [Suspect]
     Active Substance: TERIFLUNOMIDE
     Indication: Multiple sclerosis
     Dosage: 1 DF, QD (ONE TABLET A DAY)
     Route: 065
     Dates: start: 202412
  2. LAMICTAL [Concomitant]
     Active Substance: LAMOTRIGINE
     Indication: Product used for unknown indication
     Dosage: 100 MG, QD, 1 TABLET IN THE MORNING
     Route: 048
  3. TALTZ [Concomitant]
     Active Substance: IXEKIZUMAB
     Indication: Product used for unknown indication
     Dosage: UNK UNK, Q4W, 1 INJECTION
     Route: 065
     Dates: start: 20240712

REACTIONS (5)
  - Tremor [Unknown]
  - Formication [Unknown]
  - Headache [Unknown]
  - Pollakiuria [Unknown]
  - Hypoaesthesia [Unknown]

NARRATIVE: CASE EVENT DATE: 20241201
